FAERS Safety Report 6562296 (Version 2)
Quarter: 2014Q3

REPORT INFORMATION
  Report Type: Spontaneous
  Country: JP (occurrence: JP)
  Receive Date: 20080226
  Receipt Date: 20140728
  Transmission Date: 20150326
  Serious: Yes (Hospitalization, Other)
  Sender: FDA-Public Use
  Company Number: JP-RANBAXY-2008US-13184

PATIENT

DRUGS (4)
  1. Y-GLOBULIN [Suspect]
     Active Substance: HUMAN IMMUNOGLOBULIN G
     Indication: PRODUCT USED FOR UNKNOWN INDICATION
     Dosage: 1G/KG/DAY
     Route: 065
  2. ISOPTIN SR [Suspect]
     Active Substance: VERAPAMIL HYDROCHLORIDE
     Indication: ATRIAL FIBRILLATION
     Route: 042
  3. MEROPENEM. [Suspect]
     Active Substance: MEROPENEM
     Indication: PRODUCT USED FOR UNKNOWN INDICATION
     Dosage: UNK
     Route: 065
  4. DIGOXIN. [Suspect]
     Active Substance: DIGOXIN
     Indication: PRODUCT USED FOR UNKNOWN INDICATION
     Dosage: UNK
     Route: 065

REACTIONS (10)
  - Blister [Recovering/Resolving]
  - Subdural haematoma [None]
  - Extradural haematoma [None]
  - Altered state of consciousness [Unknown]
  - Fall [None]
  - Toxic epidermal necrolysis [Recovering/Resolving]
  - Lip erosion [Recovering/Resolving]
  - Erythema [Recovering/Resolving]
  - Brain contusion [None]
  - Stevens-Johnson syndrome [Recovering/Resolving]
